FAERS Safety Report 4972240-4 (Version None)
Quarter: 2006Q2

REPORT INFORMATION
  Report Type: 
  Country: None (occurrence: None)
  Receive Date: 20060413
  Receipt Date: 20060209
  Transmission Date: 20061013
  Serious: Yes (Other)
  Sender: FDA-Public Use
  Company Number: PHFR2006GB00832

PATIENT
  Age: 44 Year
  Sex: Female
  Weight: 104 kg

DRUGS (6)
  1. HYOSCINE HBR HYT [Concomitant]
     Dosage: 150UG/DAY
     Route: 048
     Dates: start: 20050613
  2. EFFEXOR [Concomitant]
     Dosage: 275MG/DAY
     Route: 048
  3. STELAZINE [Concomitant]
     Dosage: 20MG/DAY
     Route: 048
  4. CYCLIZINE [Concomitant]
     Dosage: 50MG/DAY
     Route: 048
  5. ASPIRIN [Concomitant]
     Dosage: 75MG/DAY
     Route: 048
  6. CLOZARIL [Suspect]
     Indication: SCHIZOPHRENIA
     Dosage: 300MG/DAY
     Route: 048
     Dates: start: 20050609

REACTIONS (2)
  - DIABETES MELLITUS NON-INSULIN-DEPENDENT [None]
  - OVERWEIGHT [None]
